FAERS Safety Report 6999413-3 (Version None)
Quarter: 2010Q3

REPORT INFORMATION
  Report Type: 
  Country: None (occurrence: None)
  Receive Date: 20100920
  Receipt Date: 20100909
  Transmission Date: 20110219
  Serious: Yes (Other)
  Sender: FDA-Public Use
  Company Number: BR-BAYER-201018563LA

PATIENT
  Age: 0 Hour
  Sex: Female
  Weight: 5.3 kg

DRUGS (2)
  1. BETAFERON [Suspect]
     Indication: MULTIPLE SCLEROSIS
     Route: 064
     Dates: end: 20090901
  2. NATELE [Concomitant]
     Indication: MEDICAL DIET
     Route: 064

REACTIONS (1)
  - SMALL FOR DATES BABY [None]
